FAERS Safety Report 9337809 (Version 1)
Quarter: 2013Q2

REPORT INFORMATION
  Report Type: Report from Study
  Country: US (occurrence: US)
  Receive Date: 20130607
  Receipt Date: 20130607
  Transmission Date: 20140414
  Serious: Yes (Hospitalization, Other)
  Sender: FDA-Public Use
  Company Number: US-US-EMD SERONO, INC.-7159939

PATIENT
  Age: 62 Year
  Sex: Female

DRUGS (2)
  1. REBIF [Suspect]
     Indication: MULTIPLE SCLEROSIS
     Route: 058
     Dates: start: 20101103, end: 201202
  2. REBIF [Suspect]
     Route: 058
     Dates: start: 201205

REACTIONS (5)
  - Enterocolitis infectious [Recovered/Resolved]
  - Convulsion [Not Recovered/Not Resolved]
  - Muscular weakness [Recovered/Resolved]
  - Muscular weakness [Recovered/Resolved]
  - Tremor [Not Recovered/Not Resolved]
